FAERS Safety Report 23741135 (Version 1)
Quarter: 2024Q2

REPORT INFORMATION
  Report Type: Spontaneous
  Country: US (occurrence: US)
  Receive Date: 20240415
  Receipt Date: 20240415
  Transmission Date: 20240716
  Serious: Yes (Other)
  Sender: FDA-Public Use
  Company Number: US-HALEON-2166629

PATIENT
  Age: 85 Year
  Sex: Female

DRUGS (1)
  1. PREPARATION H [Suspect]
     Active Substance: COCOA BUTTER\PHENYLEPHRINE HYDROCHLORIDE\WITCH HAZEL
     Indication: Haemorrhoids
     Dosage: EXPDATE:20251231
     Dates: end: 20240331

REACTIONS (1)
  - Rectal haemorrhage [Not Recovered/Not Resolved]
